FAERS Safety Report 25484098 (Version 1)
Quarter: 2025Q2

REPORT INFORMATION
  Report Type: Report from Study
  Country: US (occurrence: US)
  Receive Date: 20250626
  Receipt Date: 20250626
  Transmission Date: 20250716
  Serious: No
  Sender: MALLINCKRODT
  Company Number: US-MALLINCKRODT-MNK202503345

PATIENT
  Age: 34 Year
  Sex: Female

DRUGS (1)
  1. CORTICOTROPIN [Suspect]
     Active Substance: CORTICOTROPIN
     Indication: Multiple sclerosis
     Dosage: 80 UNITS
     Route: 058
     Dates: start: 20250522, end: 2025

REACTIONS (4)
  - Hypoaesthesia [Unknown]
  - Muscle tightness [Unknown]
  - Contusion [Unknown]
  - Skin discolouration [Unknown]

NARRATIVE: CASE EVENT DATE: 20250501
